FAERS Safety Report 15449222 (Version 1)
Quarter: 2018Q4

REPORT INFORMATION
  Report Type: Report from Study
  Country: US (occurrence: US)
  Receive Date: 20181001
  Receipt Date: 20181001
  Transmission Date: 20190204
  Serious: Yes (Other)
  Sender: FDA-Public Use
  Company Number: US-AMGEN-USASL2018133094

PATIENT
  Age: 62 Year
  Sex: Female

DRUGS (1)
  1. AIMOVIG [Suspect]
     Active Substance: ERENUMAB-AOOE
     Indication: PRODUCT USED FOR UNKNOWN INDICATION
     Dosage: UNK
     Route: 065
     Dates: start: 2018, end: 2018

REACTIONS (6)
  - Balance disorder [Unknown]
  - Inflammation [Recovered/Resolved]
  - Ill-defined disorder [Unknown]
  - Impaired driving ability [Recovered/Resolved]
  - Irritable bowel syndrome [Unknown]
  - Constipation [Unknown]

NARRATIVE: CASE EVENT DATE: 2018
